FAERS Safety Report 4675290-0 (Version None)
Quarter: 2005Q2

REPORT INFORMATION
  Report Type: 
  Country: None (occurrence: None)
  Receive Date: 20050527
  Receipt Date: 20050513
  Transmission Date: 20051028
  Serious: Yes (Hospitalization, Other)
  Sender: FDA-Public Use
  Company Number: FR-JNJFOC-20050406941

PATIENT
  Age: 22 Year
  Sex: Female

DRUGS (7)
  1. REMICADE [Suspect]
     Dosage: 2ND INFUSION
     Route: 042
  2. REMICADE [Suspect]
     Indication: CROHN'S DISEASE
     Dosage: 1ST INFUSION
     Route: 042
  3. IMUREL [Concomitant]
     Indication: CROHN'S DISEASE
     Route: 049
  4. CORTANCYL [Concomitant]
     Indication: CROHN'S DISEASE
     Route: 049
  5. PENTASA [Concomitant]
     Indication: CROHN'S DISEASE
     Dosage: 3 TABS QD
     Route: 049
  6. IDEOS [Concomitant]
     Route: 049
  7. IDEOS [Concomitant]
     Indication: CROHN'S DISEASE
     Dosage: 1 TAB QD
     Route: 049

REACTIONS (2)
  - ATELECTASIS [None]
  - TUBERCULOSIS [None]
